FAERS Safety Report 8889866 (Version 1)
Quarter: 2012Q4

REPORT INFORMATION
  Report Type: 
  Country: US (occurrence: US)
  Receive Date: 20121107
  Receipt Date: 20121107
  Transmission Date: 20130627
  Serious: No
  Sender: FDA-Public Use
  Company Number: US-ABBOTT-12P-163-0979458-00

PATIENT
  Sex: Female

DRUGS (2)
  1. TRICOR [Suspect]
     Indication: PRODUCT USED FOR UNKNOWN INDICATION
     Dates: start: 201201, end: 201202
  2. TRICOR [Suspect]
     Dates: start: 201202, end: 201203

REACTIONS (4)
  - Fatigue [Recovered/Resolved]
  - Myalgia [Recovered/Resolved]
  - Asthenia [Recovered/Resolved]
  - Alopecia [Not Recovered/Not Resolved]
